FAERS Safety Report 12634780 (Version 1)
Quarter: 2016Q3

REPORT INFORMATION
  Report Type: Spontaneous
  Country: CN (occurrence: CN)
  Receive Date: 20160809
  Receipt Date: 20160809
  Transmission Date: 20161109
  Serious: Yes (Other)
  Sender: FDA-Public Use
  Company Number: CN-JNJFOC-20160724123

PATIENT

DRUGS (4)
  1. TOPIRAMATE. [Suspect]
     Active Substance: TOPIRAMATE
     Indication: EPILEPSY
     Dosage: START DOSE WAS 25 MG/DAY FOR ADULTS, 0.5 MG/KG/DAY) FOR CHILDREN
     Route: 048
  2. TOPIRAMATE. [Suspect]
     Active Substance: TOPIRAMATE
     Indication: ENCEPHALITIS
     Dosage: THE DOSE WAS GRADUALLY INCREASED TO 100-200 MG/DAY
     Route: 048
  3. TOPIRAMATE. [Suspect]
     Active Substance: TOPIRAMATE
     Indication: EPILEPSY
     Dosage: THE DOSE WAS GRADUALLY INCREASED TO 100-200 MG/DAY
     Route: 048
  4. TOPIRAMATE. [Suspect]
     Active Substance: TOPIRAMATE
     Indication: ENCEPHALITIS
     Dosage: START DOSE WAS 25 MG/DAY FOR ADULTS, 0.5 MG/KG/DAY) FOR CHILDREN
     Route: 048

REACTIONS (4)
  - Liver injury [Unknown]
  - Rash [Unknown]
  - Asthenia [Unknown]
  - Dizziness [Unknown]
